FAERS Safety Report 22145197 (Version 1)
Quarter: 2023Q1

REPORT INFORMATION
  Report Type: Spontaneous
  Country: ES (occurrence: ES)
  Receive Date: 20230328
  Receipt Date: 20230328
  Transmission Date: 20230418
  Serious: Yes (Hospitalization)
  Sender: FDA-Public Use
  Company Number: None

PATIENT
  Age: 53 Year
  Sex: Male

DRUGS (2)
  1. IVABRADINE [Suspect]
     Active Substance: IVABRADINE
     Indication: Prinzmetal angina
     Dosage: 5 MG, BID
     Route: 048
     Dates: start: 20190318
  2. IVABRADINE [Suspect]
     Active Substance: IVABRADINE
     Indication: Off label use

REACTIONS (2)
  - Vitreous floaters [Recovered/Resolved]
  - Diplopia [Recovered/Resolved]

NARRATIVE: CASE EVENT DATE: 20190323
